FAERS Safety Report 10549479 (Version 2)
Quarter: 2015Q1

REPORT INFORMATION
  Report Type: Spontaneous
  Country: US (occurrence: None)
  Receive Date: 20141020
  Receipt Date: 20150120
  Transmission Date: 20150720
  Serious: Yes (Other)
  Sender: FDA-Public Use
  Company Number: AEGR000659

PATIENT
  Age: 50 Year
  Sex: Female
  Weight: 86.2 kg

DRUGS (1)
  1. JUXTAPID [Suspect]
     Active Substance: LOMITAPIDE MESYLATE
     Indication: TYPE IIA HYPERLIPIDAEMIA
     Route: 048
     Dates: start: 20140723, end: 20140806

REACTIONS (8)
  - Diarrhoea [None]
  - Headache [None]
  - Erythema [None]
  - Pruritus [None]
  - Weight decreased [None]
  - Abdominal discomfort [None]
  - Inappropriate schedule of drug administration [None]
  - Nausea [None]

NARRATIVE: CASE EVENT DATE: 2014
